FAERS Safety Report 4515530-1 (Version None)
Quarter: 2004Q4

REPORT INFORMATION
  Report Type: 
  Country: None (occurrence: None)
  Receive Date: 20041126
  Receipt Date: 20041110
  Transmission Date: 20050328
  Serious: Yes (Death)
  Sender: FDA-Public Use
  Company Number: 190764

PATIENT
  Age: 44 Year
  Sex: Female
  Weight: 52.1637 kg

DRUGS (9)
  1. AVONEX [Suspect]
     Indication: MULTIPLE SCLEROSIS
     Dosage: 30 UG; QW; IM
     Route: 030
     Dates: start: 20031101
  2. TIZANIDINE [Concomitant]
  3. BACLOFEN [Concomitant]
  4. CLONAZEPAM [Concomitant]
  5. PROXYPHENE [Concomitant]
  6. CYCLOBENZAPRINE [Concomitant]
  7. HALOPERIDOL [Concomitant]
  8. AMITRYPTYLINE [Concomitant]
  9. KEPPRA [Concomitant]

REACTIONS (1)
  - OVERDOSE [None]
